FAERS Safety Report 7540182-6 (Version None)
Quarter: 2011Q2

REPORT INFORMATION
  Report Type: 
  Country: None (occurrence: None)
  Receive Date: 20110610
  Receipt Date: 20110526
  Transmission Date: 20111010
  Serious: Yes (Hospitalization)
  Sender: FDA-Public Use
  Company Number: US-BAYER-2011-046722

PATIENT
  Age: 57 Year
  Sex: Male
  Weight: 69.841 kg

DRUGS (7)
  1. ASPIRIN [Suspect]
     Dosage: UNK
     Route: 048
     Dates: start: 20110409
  2. CARVEDILOL [Concomitant]
     Dosage: UNK
     Dates: start: 20080715
  3. SIMVASTATIN [Concomitant]
     Dosage: UNK
     Dates: start: 20110106
  4. LISINOPRIL [Concomitant]
     Dosage: UNK
     Dates: start: 20080715
  5. EPLERENONE [Suspect]
     Indication: CARDIAC FAILURE CONGESTIVE
     Dosage: 50 MG, QD
     Route: 048
     Dates: start: 20100901
  6. LASIX [Concomitant]
     Dosage: UNK
     Dates: start: 20090311
  7. PLAVIX [Suspect]
     Dosage: UNK
     Route: 048
     Dates: start: 20110409

REACTIONS (5)
  - HYPERKALAEMIA [None]
  - PLEURAL EFFUSION [None]
  - LUNG NEOPLASM [None]
  - PULMONARY OEDEMA [None]
  - HAEMOPTYSIS [None]
